FAERS Safety Report 10064090 (Version 4)
Quarter: 2015Q2

REPORT INFORMATION
  Report Type: Spontaneous
  Country: US (occurrence: US)
  Receive Date: 20140408
  Receipt Date: 20150626
  Transmission Date: 20150821
  Serious: Yes (Hospitalization, Other)
  Sender: FDA-Public Use
  Company Number: US-UCBSA-116399

PATIENT
  Age: 20 Year
  Sex: Female
  Weight: 49.9 kg

DRUGS (1)
  1. CIMZIA [Suspect]
     Active Substance: CERTOLIZUMAB PEGOL
     Indication: CROHN^S DISEASE
     Dosage: 400 MG, EV 4 WEEKS
     Route: 058
     Dates: start: 201205

REACTIONS (4)
  - Injection site discolouration [Recovered/Resolved]
  - Intestinal perforation [Recovered/Resolved with Sequelae]
  - Injection site bruising [Recovered/Resolved]
  - Abdominal wall disorder [Unknown]

NARRATIVE: CASE EVENT DATE: 201212
